FAERS Safety Report 19886416 (Version 1)
Quarter: 2021Q3

REPORT INFORMATION
  Report Type: Spontaneous
  Country: US (occurrence: US)
  Receive Date: 20210927
  Receipt Date: 20210927
  Transmission Date: 20211014
  Serious: No
  Sender: FDA-Public Use
  Company Number: US-TORRENT-00011258

PATIENT
  Sex: Male
  Weight: 54 kg

DRUGS (1)
  1. CITALOPRAM HYDROBROMIDE TABLETS [Suspect]
     Active Substance: CITALOPRAM HYDROBROMIDE
     Indication: COLITIS
     Dosage: ONE TABLET ONCE DAILY
     Dates: start: 2021

REACTIONS (2)
  - Colitis [Unknown]
  - Adverse event [Unknown]

NARRATIVE: CASE EVENT DATE: 20210913
